FAERS Safety Report 7645420-7 (Version None)
Quarter: 2011Q3

REPORT INFORMATION
  Report Type: 
  Country: None (occurrence: None)
  Receive Date: 20110729
  Receipt Date: 20110725
  Transmission Date: 20111222
  Serious: Yes (Hospitalization)
  Sender: FDA-Public Use
  Company Number: PL-B.I. PHARMACEUTICALS,INC./RIDGEFIELD-2010-AP-00277AP

PATIENT
  Sex: Male
  Weight: 67 kg

DRUGS (4)
  1. PYRALGINUM [Concomitant]
     Indication: PAIN
     Dosage: 2 X 2.5 G
     Route: 042
     Dates: start: 20100518, end: 20100520
  2. PRADAXA [Suspect]
     Dosage: 220 MG
     Route: 048
     Dates: start: 20100519, end: 20100525
  3. PRADAXA [Suspect]
     Indication: THROMBOSIS PROPHYLAXIS
     Dosage: 110 MG
     Route: 048
     Dates: start: 20100518, end: 20100518
  4. BIOFAZOLIN [Concomitant]
     Indication: ANTIBIOTIC THERAPY
     Dosage: 3 X 1.0 G
     Route: 042
     Dates: start: 20100518, end: 20100519

REACTIONS (4)
  - SUBCUTANEOUS HAEMATOMA [None]
  - OEDEMA PERIPHERAL [None]
  - DEEP VEIN THROMBOSIS [None]
  - DRUG INEFFECTIVE [None]
